FAERS Safety Report 8801821 (Version 1)
Quarter: 2012Q4

REPORT INFORMATION
  Report Type: Report from Study
  Country: CA (occurrence: CA)
  Receive Date: 20120921
  Receipt Date: 20120921
  Transmission Date: 20130627
  Serious: Yes (Hospitalization)
  Sender: FDA-Public Use
  Company Number: CA-ROCHE-1133723

PATIENT
  Sex: Female
  Weight: 124.4 kg

DRUGS (3)
  1. AVASTIN [Suspect]
     Indication: GLIOBLASTOMA
     Route: 042
     Dates: start: 20120228, end: 20120411
  2. VENTOLIN [Concomitant]
  3. ALESSE [Concomitant]
     Indication: CONTRACEPTION

REACTIONS (1)
  - Disease progression [Not Recovered/Not Resolved]
